FAERS Safety Report 7166349-7 (Version None)
Quarter: 2010Q4

REPORT INFORMATION
  Report Type: 
  Country: None (occurrence: None)
  Receive Date: 20101216
  Receipt Date: 20101005
  Transmission Date: 20110411
  Serious: No
  Sender: FDA-Public Use
  Company Number: US-ABBOTT-10P-163-0677100-00

PATIENT
  Sex: Female
  Weight: 60.836 kg

DRUGS (6)
  1. TRILIPIX [Suspect]
     Indication: BLOOD TRIGLYCERIDES INCREASED
     Dates: start: 20090101
  2. PREMARIN [Concomitant]
     Indication: HORMONE REPLACEMENT THERAPY
  3. COQ10 [Concomitant]
     Indication: VITAMIN SUPPLEMENTATION
  4. CINNAMON PILLS [Concomitant]
     Indication: NUTRITIONAL SUPPORT
  5. FLAXSEED OIL [Concomitant]
     Indication: VITAMIN SUPPLEMENTATION
  6. VITAMINS [Concomitant]
     Indication: VITAMIN SUPPLEMENTATION

REACTIONS (1)
  - NAUSEA [None]
